FAERS Safety Report 10879985 (Version 2)
Quarter: 2015Q4

REPORT INFORMATION
  Report Type: Spontaneous
  Country: US (occurrence: US)
  Receive Date: 20150302
  Receipt Date: 20151105
  Transmission Date: 20160304
  Serious: Yes (Other)
  Sender: FDA-Public Use
  Company Number: US-BIOMARINAP-US-2015-105667

PATIENT
  Sex: Male
  Weight: 12 kg

DRUGS (1)
  1. VIMIZIM [Suspect]
     Active Substance: ELOSULFASE ALFA
     Indication: MUCOPOLYSACCHARIDOSIS IV
     Dosage: UNK, QW
     Route: 042
     Dates: start: 20140319

REACTIONS (3)
  - Spinal cord injury [Not Recovered/Not Resolved]
  - Spinal instability [Not Recovered/Not Resolved]
  - Spinal cord compression [Not Recovered/Not Resolved]
